FAERS Safety Report 9646625 (Version 1)
Quarter: 2013Q4

REPORT INFORMATION
  Report Type: Report from Study
  Country: US (occurrence: US)
  Receive Date: 20131026
  Receipt Date: 20131026
  Transmission Date: 20140711
  Serious: Yes (Death)
  Sender: FDA-Public Use
  Company Number: US-ROCHE-1295032

PATIENT
  Sex: Male

DRUGS (1)
  1. CELLCEPT [Suspect]
     Indication: PEMPHIGOID
     Dosage: 200 MG/ML  (1.5 GM)
     Route: 065

REACTIONS (1)
  - Death [Fatal]
